FAERS Safety Report 6789856-5 (Version None)
Quarter: 2010Q2

REPORT INFORMATION
  Report Type: 
  Country: None (occurrence: None)
  Receive Date: 20100624
  Receipt Date: 20100614
  Transmission Date: 20101027
  Serious: Yes (Other)
  Sender: FDA-Public Use
  Company Number: US-BAYER-201025633NA

PATIENT
  Sex: Female

DRUGS (1)
  1. YAZ [Suspect]
     Indication: DRUG USE FOR UNKNOWN INDICATION
     Route: 048
     Dates: start: 20090701, end: 20091001

REACTIONS (5)
  - HEADACHE [None]
  - HYPOAESTHESIA FACIAL [None]
  - ISCHAEMIC CEREBRAL INFARCTION [None]
  - NAUSEA [None]
  - VISUAL IMPAIRMENT [None]
